FAERS Safety Report 23731113 (Version 1)
Quarter: 2024Q2

REPORT INFORMATION
  Report Type: Spontaneous
  Country: FR (occurrence: FR)
  Receive Date: 20240411
  Receipt Date: 20240411
  Transmission Date: 20240716
  Serious: Yes (Hospitalization)
  Sender: FDA-Public Use
  Company Number: FR-RECORDATI RARE DISEASE INC.-2024002318

PATIENT

DRUGS (4)
  1. COSMEGEN [Suspect]
     Active Substance: DACTINOMYCIN
     Indication: Embryonal rhabdomyosarcoma
     Dosage: 2. 5 MG, EVERY 1 CYCLE,  (C1J1) (POUR SOLUTION INJECTABLE)
     Route: 042
     Dates: start: 20240115, end: 20240115
  2. IFOSFAMIDE [Suspect]
     Active Substance: IFOSFAMIDE
     Indication: Embryonal rhabdomyosarcoma
     Dosage: 10.2 G, EVERY 1 CYCLE (5100 MG C1J1 ET 5100 MG C1J2) (1000 MG, POUDRE POUR SOLUTION INJECTABLE)
     Route: 042
     Dates: start: 20240115, end: 20240116
  3. DOXORUBICIN [Suspect]
     Active Substance: DOXORUBICIN
     Indication: Embryonal rhabdomyosarcoma
     Dosage: 136 MG, EVERY 1 CYCLE (68 MG C1J1 ET 68 MG C1J2 ) (2 MG/ML, POUDRE POUR SOLUTION POUR PERFUSION)
     Route: 042
     Dates: start: 20240115, end: 20240116
  4. VINCRISTINE [Suspect]
     Active Substance: VINCRISTINE
     Indication: Embryonal rhabdomyosarcoma
     Dosage: 2  MG , EVERY 1 CYCLE (C1J1) (2 MG/2 ML, SOLUTION INJECTABLE)
     Route: 042
     Dates: start: 20240115, end: 20240115

REACTIONS (1)
  - Fanconi syndrome [Recovered/Resolved]

NARRATIVE: CASE EVENT DATE: 20240118
